FAERS Safety Report 19367052 (Version 1)
Quarter: 2021Q2

REPORT INFORMATION
  Report Type: Spontaneous
  Country: US (occurrence: US)
  Receive Date: 20210603
  Receipt Date: 20210603
  Transmission Date: 20210717
  Serious: Yes (Other)
  Sender: FDA-Public Use
  Company Number: US-PFIZER INC-2021593688

PATIENT
  Age: 69 Year
  Sex: Female
  Weight: 65.77 kg

DRUGS (3)
  1. IMIPRAMINE [Concomitant]
     Active Substance: IMIPRAMINE
     Indication: IRRITABLE BOWEL SYNDROME
     Dosage: 10 TO 20 MG, DAILY
  2. LYRICA [Suspect]
     Active Substance: PREGABALIN
     Indication: FIBROMYALGIA
     Dosage: 75 MG, 2X/DAY (TWICE A DAY)
     Dates: start: 2018
  3. LIVALO [Concomitant]
     Active Substance: PITAVASTATIN CALCIUM
     Indication: BLOOD CHOLESTEROL INCREASED
     Dosage: 2 MG, DAILY

REACTIONS (1)
  - Drug dependence [Not Recovered/Not Resolved]
